FAERS Safety Report 25345598 (Version 1)
Quarter: 2025Q2

REPORT INFORMATION
  Report Type: Spontaneous
  Country: US (occurrence: US)
  Receive Date: 20250522
  Receipt Date: 20250522
  Transmission Date: 20250716
  Serious: No
  Sender: RECKITT BENCKISER
  Company Number: US-PROD-AS2-212756134-20-24-USA-RB-0003507

PATIENT
  Age: 63 Year
  Sex: Female
  Weight: 70.76 kg

DRUGS (1)
  1. MUCINEX DM MAXIMUM STRENGTH [Suspect]
     Active Substance: DEXTROMETHORPHAN HYDROBROMIDE\GUAIFENESIN
     Indication: COVID-19
     Dosage: 1 DF BID
     Route: 048
     Dates: start: 20240630

REACTIONS (2)
  - Incorrect product administration duration [Unknown]
  - Product use in unapproved indication [Unknown]

NARRATIVE: CASE EVENT DATE: 20240702
